FAERS Safety Report 7737743-8 (Version None)
Quarter: 2011Q3

REPORT INFORMATION
  Report Type: 
  Country: None (occurrence: None)
  Receive Date: 20110902
  Receipt Date: 20110822
  Transmission Date: 20111222
  Serious: Yes (Other)
  Sender: FDA-Public Use
  Company Number: 2011MA012697

PATIENT
  Sex: Female

DRUGS (1)
  1. ACYCLOVIR [Suspect]
     Indication: PRODUCT USED FOR UNKNOWN INDICATION
     Dosage: 800 MG, X5, PO
     Route: 048
     Dates: start: 20041101

REACTIONS (3)
  - DRUG INEFFECTIVE [None]
  - BRAIN INJURY [None]
  - NAUSEA [None]
